FAERS Safety Report 6863228 (Version 7)
Quarter: 2014Q2

REPORT INFORMATION
  Report Type: Report from Study
  Country: PT (occurrence: PT)
  Receive Date: 20081222
  Receipt Date: 20140422
  Transmission Date: 20141212
  Serious: Yes (Life-Threatening, Hospitalization)
  Sender: FDA-Public Use
  Company Number: PT-BIOGENIDEC-2008BI033925

PATIENT
  Age: 66 Year
  Sex: Female

DRUGS (3)
  1. TYSABRI [Suspect]
     Indication: MULTIPLE SCLEROSIS
     Route: 042
     Dates: start: 20081105, end: 20081203
  2. FLUOXETINE [Concomitant]
     Dates: start: 2006
  3. COPAXONE [Concomitant]

REACTIONS (1)
  - Cerebrovascular accident [Recovered/Resolved]
